FAERS Safety Report 9484395 (Version 2)
Quarter: 2013Q3

REPORT INFORMATION
  Report Type: Spontaneous
  Country: CA (occurrence: CA)
  Receive Date: 20130828
  Receipt Date: 20130828
  Transmission Date: 20140515
  Serious: Yes (Other)
  Sender: FDA-Public Use
  Company Number: CA-AMGEN-KDL399834

PATIENT
  Age: 37 Year
  Sex: Male
  Weight: 80.8 kg

DRUGS (3)
  1. ENBREL [Suspect]
     Indication: ANKYLOSING SPONDYLITIS
     Dosage: UNK UNK, QWK
     Route: 065
     Dates: start: 20100315
  2. CIPRALEX [Concomitant]
     Dosage: 20 MG, QWK
     Route: 048
  3. PANTOPRAZOLE [Concomitant]
     Dosage: 40 MG, QWK
     Route: 048

REACTIONS (10)
  - Amnesia [Not Recovered/Not Resolved]
  - Feeling abnormal [Unknown]
  - Musculoskeletal pain [Not Recovered/Not Resolved]
  - Weight decreased [Not Recovered/Not Resolved]
  - Headache [Unknown]
  - Back pain [Not Recovered/Not Resolved]
  - Drug ineffective [Not Recovered/Not Resolved]
  - Injection site haemorrhage [Unknown]
  - Injection site bruising [Unknown]
  - Injection site pain [Unknown]
